FAERS Safety Report 6676594-2 (Version None)
Quarter: 2010Q2

REPORT INFORMATION
  Report Type: 
  Country: None (occurrence: None)
  Receive Date: 20100408
  Receipt Date: 20100324
  Transmission Date: 20101027
  Serious: Yes (Other)
  Sender: FDA-Public Use
  Company Number: AVE_01708_2010

PATIENT
  Sex: Male

DRUGS (7)
  1. CLONIDINE [Suspect]
     Indication: HYPERTENSION
     Dosage: (0.2 MG, VIA 1/WEEKLY PATCH TRANSDERMAL), 0.3 MG QD, VIA 1/WEEKLY PATCH TRANSDERMAL)
     Route: 062
     Dates: end: 20100213
  2. CLONIDINE [Suspect]
     Indication: HYPERTENSION
     Dosage: (0.2 MG, VIA 1/WEEKLY PATCH TRANSDERMAL), 0.3 MG QD, VIA 1/WEEKLY PATCH TRANSDERMAL)
     Route: 062
     Dates: start: 20100213
  3. METFORMIN [Concomitant]
  4. LISINOPRIL [Concomitant]
  5. PLAVIX [Concomitant]
  6. METOPROLOL TARTRATE [Concomitant]
  7. CLONIDINE [Concomitant]

REACTIONS (5)
  - BLOOD PRESSURE INCREASED [None]
  - DRUG INEFFECTIVE [None]
  - HEART RATE INCREASED [None]
  - PRODUCT QUALITY ISSUE [None]
  - TREMOR [None]
